FAERS Safety Report 6910963 (Version 1)
Quarter: 2020Q3

REPORT INFORMATION
  Report Type: Report from Study
  Country: US (occurrence: US)
  Receive Date: 20090217
  Receipt Date: 20090217
  Transmission Date: 20201104
  Serious: Yes (Other)
  Sender: FDA-Public Use
  Company Number: US-ROCHE-612891

PATIENT
  Age: 73 Year
  Sex: Female

DRUGS (2)
  1. IBANDRONIC ACID. [Suspect]
     Active Substance: IBANDRONIC ACID
     Indication: OSTEOPOROSIS
     Dosage: THERAPY INTERRUPTED FOR SIX WEEKS
     Route: 065
     Dates: start: 2007
  2. IBANDRONIC ACID. [Suspect]
     Active Substance: IBANDRONIC ACID
     Dosage: THERAPY RESTARTED
     Route: 065
     Dates: start: 200812

REACTIONS (3)
  - Haemoglobin decreased [Unknown]
  - Malaise [Unknown]
  - Cataract [Unknown]
